FAERS Safety Report 6701528-1 (Version None)
Quarter: 2010Q2

REPORT INFORMATION
  Report Type: 
  Country: None (occurrence: None)
  Receive Date: 20100427
  Receipt Date: 20100421
  Transmission Date: 20101027
  Serious: Yes (Death)
  Sender: FDA-Public Use
  Company Number: JHP201000126

PATIENT
  Age: 56 Year
  Sex: Male
  Weight: 195 kg

DRUGS (10)
  1. PITRESSIN [Suspect]
     Indication: HAEMODYNAMIC INSTABILITY
     Dosage: 0.04 U/MIN ON AND OFF FOR 47 DAYS, INTRAVENOUS
     Route: 042
  2. NOREPINEPHRINE        (NOREPINEPHRINE BILARTRATE) [Suspect]
     Indication: HAEMODYNAMIC INSTABILITY
     Dosage: 70 UG/MIN, INTRAVENOUS; 40 UG/MIN, INTRAVENOUS
     Route: 042
  3. PHENYLEPHRINE                 (PHENYLEPHRINE HYDROCHLORIDE) [Suspect]
     Indication: HYPOTENSION
     Dosage: 200 UG/MIN, INTRAVENOUS
     Route: 042
  4. HYDROCORTISONE             (HYDROCORTISONE HYDROGEN SUCCINATE) [Suspect]
     Indication: HYPOTENSION
     Dosage: 100 MG, TID, INTRAVENOUS
     Route: 042
  5. COLISTIMETHATE SODIUM            (COLISTIN MESILATE SODIUM) [Concomitant]
  6. AMIKACIN SULFATE [Concomitant]
  7. MEROPENEM [Concomitant]
  8. VANCOMYCIN [Concomitant]
  9. CASPOFUNGIN (CASPOFUNGIN) [Concomitant]
  10. XIGRIS [Concomitant]

REACTIONS (10)
  - CARDIAC ARREST [None]
  - CONTINUOUS HAEMODIAFILTRATION [None]
  - FLUID OVERLOAD [None]
  - GENERAL PHYSICAL HEALTH DETERIORATION [None]
  - HYPERKALAEMIA [None]
  - INFECTION [None]
  - METABOLIC ACIDOSIS [None]
  - PNEUMONIA [None]
  - RENAL FAILURE ACUTE [None]
  - SEPTIC SHOCK [None]
